FAERS Safety Report 9421167 (Version 1)
Quarter: 2013Q3

REPORT INFORMATION
  Report Type: Spontaneous
  Country: US (occurrence: US)
  Receive Date: 20130725
  Receipt Date: 20130725
  Transmission Date: 20140515
  Serious: Yes (Death, Other)
  Sender: FDA-Public Use
  Company Number: PHHY2013US078643

PATIENT
  Age: 65 Year
  Sex: Male

DRUGS (5)
  1. TEMOZOLOMIDE [Suspect]
     Indication: GLIOBLASTOMA MULTIFORME
     Dosage: 200 MG, DAILY
     Route: 048
  2. CEFALEXIN [Suspect]
     Indication: CELLULITIS
     Dosage: UNK
  3. CIPROFLOXACIN [Suspect]
     Indication: CELLULITIS
     Dosage: UNK
  4. LEVETIRACETAM [Concomitant]
     Indication: CONVULSION PROPHYLAXIS
  5. PIPERACILLIN AND TAZOBACTAM [Concomitant]
     Indication: CELLULITIS

REACTIONS (5)
  - Gastrointestinal haemorrhage [Fatal]
  - Liver injury [Recovering/Resolving]
  - Jaundice [Recovering/Resolving]
  - Cholestasis [Recovering/Resolving]
  - Nausea [Recovering/Resolving]
